FAERS Safety Report 18947593 (Version 2)
Quarter: 2021Q2

REPORT INFORMATION
  Report Type: Report from Study
  Country: US (occurrence: US)
  Receive Date: 20210226
  Receipt Date: 20210416
  Transmission Date: 20210717
  Serious: No
  Sender: FDA-Public Use
  Company Number: NVSC2021US039954

PATIENT
  Sex: Male

DRUGS (1)
  1. COSENTYX [Suspect]
     Active Substance: SECUKINUMAB
     Indication: ANKYLOSING SPONDYLITIS
     Dosage: UNK UNK, OTHER,( ONCE A WEEK FOR 5 WEEKS AND THEN Q 4W)
     Route: 058

REACTIONS (2)
  - Sinus headache [Unknown]
  - Oropharyngeal pain [Unknown]
